FAERS Safety Report 25317259 (Version 2)
Quarter: 2025Q3

REPORT INFORMATION
  Report Type: Spontaneous
  Country: CA (occurrence: CA)
  Receive Date: 20250515
  Receipt Date: 20250728
  Transmission Date: 20251020
  Serious: Yes (Hospitalization, Other)
  Sender: CSL BEHRING
  Company Number: CA-BEH-2025204135

PATIENT
  Age: 65 Year
  Sex: Male
  Weight: 50 kg

DRUGS (7)
  1. PRIVIGEN [Suspect]
     Active Substance: HUMAN IMMUNOGLOBULIN G
     Indication: Immunodeficiency
     Route: 042
     Dates: start: 20241108, end: 20241108
  2. LIPITOR [Concomitant]
     Active Substance: ATORVASTATIN CALCIUM
  3. GLUCOPHAGE [Concomitant]
     Active Substance: METFORMIN HYDROCHLORIDE
  4. PANTOPRAZOLE SODIUM [Concomitant]
     Active Substance: PANTOPRAZOLE SODIUM
  5. PERINDOPRIL [Concomitant]
     Active Substance: PERINDOPRIL
  6. ANDROGEL [Concomitant]
     Active Substance: TESTOSTERONE
  7. Caspof [Concomitant]

REACTIONS (30)
  - Myocardial ischaemia [Not Recovered/Not Resolved]
  - Electrocardiogram QT prolonged [Not Recovered/Not Resolved]
  - Sinus arrhythmia [Not Recovered/Not Resolved]
  - Ventricular extrasystoles [Not Recovered/Not Resolved]
  - Electrocardiogram T wave abnormal [Not Recovered/Not Resolved]
  - Electrocardiogram ST segment abnormal [Not Recovered/Not Resolved]
  - Electrocardiogram abnormal [Not Recovered/Not Resolved]
  - Interstitial lung disease [Not Recovered/Not Resolved]
  - Pleural effusion [Not Recovered/Not Resolved]
  - Atelectasis [Not Recovered/Not Resolved]
  - Lung opacity [Not Recovered/Not Resolved]
  - Chills [Not Recovered/Not Resolved]
  - Dyspnoea [Not Recovered/Not Resolved]
  - Tachypnoea [Not Recovered/Not Resolved]
  - Tachycardia [Not Recovered/Not Resolved]
  - Agitation [Not Recovered/Not Resolved]
  - Irritability [Not Recovered/Not Resolved]
  - Rales [Not Recovered/Not Resolved]
  - Pyrexia [Not Recovered/Not Resolved]
  - Oxygen saturation decreased [Not Recovered/Not Resolved]
  - Respiratory rate increased [Not Recovered/Not Resolved]
  - Heart rate increased [Not Recovered/Not Resolved]
  - Acute pulmonary oedema [Recovered/Resolved]
  - Hypertension [Recovered/Resolved]
  - Wheezing [Not Recovered/Not Resolved]
  - Pneumobilia [Not Recovered/Not Resolved]
  - Tricuspid valve incompetence [Unknown]
  - Mitral valve incompetence [Not Recovered/Not Resolved]
  - Left atrial enlargement [Not Recovered/Not Resolved]
  - Left ventricular hypertrophy [Not Recovered/Not Resolved]

NARRATIVE: CASE EVENT DATE: 20241101
